FAERS Safety Report 4563753-8 (Version None)
Quarter: 2005Q1

REPORT INFORMATION
  Report Type: 
  Country: None (occurrence: None)
  Receive Date: 20050128
  Receipt Date: 20040809
  Transmission Date: 20050727
  Serious: Yes (Other)
  Sender: FDA-Public Use
  Company Number: PHNU2004DE02800

PATIENT
  Age: 52 Year
  Sex: Female
  Weight: 60 kg

DRUGS (2)
  1. CLOTRIMAZOLE [Concomitant]
  2. ELIDEL [Suspect]
     Indication: LICHEN SCLEROSUS
     Dosage: 1 DF, BID
     Route: 061
     Dates: start: 20040715, end: 20040807

REACTIONS (7)
  - APPLICATION SITE DRYNESS [None]
  - APPLICATION SITE ERYTHEMA [None]
  - APPLICATION SITE IRRITATION [None]
  - APPLICATION SITE PRURITUS [None]
  - APPLICATION SITE REACTION [None]
  - APPLICATION SITE SWELLING [None]
  - APPLICATION SITE VESICLES [None]
